FAERS Safety Report 5562845-4 (Version None)
Quarter: 2007Q4

REPORT INFORMATION
  Report Type: 
  Country: None (occurrence: None)
  Receive Date: 20071217
  Receipt Date: 20071206
  Transmission Date: 20080405
  Serious: Yes (Other)
  Sender: FDA-Public Use
  Company Number: GB-JNJFOC-20071202718

PATIENT
  Age: 47 Year
  Sex: Female
  Weight: 85 kg

DRUGS (8)
  1. REMICADE [Suspect]
     Indication: PSORIASIS
     Route: 042
  2. ATARAX [Concomitant]
     Indication: PRURITUS
     Route: 048
  3. BETNOVATE [Concomitant]
     Indication: PSORIASIS
     Route: 061
  4. CALCICHEW [Concomitant]
     Route: 048
  5. EUMOVATE [Concomitant]
     Indication: PSORIASIS
     Route: 061
  6. MULTI-VITAMIN [Concomitant]
     Route: 048
  7. ACETAMINOPHEN [Concomitant]
     Indication: ANALGESIA
     Route: 048
  8. UNGUENTUM MERCK [Concomitant]
     Indication: PSORIASIS
     Route: 061

REACTIONS (3)
  - CHILLS [None]
  - ERYTHRODERMIC PSORIASIS [None]
  - MALAISE [None]
